FAERS Safety Report 9324808 (Version 5)
Quarter: 2013Q4

REPORT INFORMATION
  Report Type: Spontaneous
  Country: CA (occurrence: CA)
  Receive Date: 20130603
  Receipt Date: 20131101
  Transmission Date: 20140711
  Serious: Yes (Hospitalization, Other)
  Sender: FDA-Public Use
  Company Number: CA-BAXTER-2013BAX019797

PATIENT
  Age: 63 Year
  Sex: Female
  Weight: 61 kg

DRUGS (3)
  1. GAMMAGARD LIQUID -IMMUNE GLOBULIN INTRAVENOUS (HUMAN), [IGIV] 10% [Suspect]
     Indication: DERMATITIS
     Route: 042
     Dates: start: 20121022, end: 20121022
  2. GAMMAGARD LIQUID -IMMUNE GLOBULIN INTRAVENOUS (HUMAN), [IGIV] 10% [Suspect]
     Indication: IMMUNOGLOBULINS DECREASED
     Route: 042
     Dates: start: 20100806
  3. GAMMAGARD LIQUID -IMMUNE GLOBULIN INTRAVENOUS (HUMAN), [IGIV] 10% [Suspect]
     Indication: PNEUMONIA

REACTIONS (8)
  - Vertigo [Recovered/Resolved with Sequelae]
  - Diplopia [Recovered/Resolved with Sequelae]
  - Hypersensitivity [Recovered/Resolved with Sequelae]
  - Intracranial pressure increased [Unknown]
  - Meningitis aseptic [Unknown]
  - Visual impairment [Recovered/Resolved]
  - Dizziness [Recovered/Resolved]
  - Headache [Unknown]
